FAERS Safety Report 20833936 (Version 5)
Quarter: 2022Q2

REPORT INFORMATION
  Report Type: Spontaneous
  Country: US (occurrence: US)
  Receive Date: 20220516
  Receipt Date: 20220607
  Transmission Date: 20220721
  Serious: No
  Sender: FDA-Public Use
  Company Number: US-PFIZER INC-202200677349

PATIENT
  Age: 64 Year
  Sex: Female
  Weight: 93.424 kg

DRUGS (12)
  1. PAXLOVID [Suspect]
     Active Substance: NIRMATRELVIR\RITONAVIR
     Indication: COVID-19 treatment
     Dosage: UNK, 2X/DAY (RITONAVIR 100 MG AND NIRMATRELVIR 300 MG)
     Route: 048
     Dates: start: 20220425, end: 20220430
  2. METFORMIN [Concomitant]
     Active Substance: METFORMIN HYDROCHLORIDE
     Dosage: 1500 MG, DAILY (1000MG Q AM, 500MG QPM)
     Route: 048
     Dates: start: 20090101
  3. JARDIANCE [Concomitant]
     Active Substance: EMPAGLIFLOZIN
     Dosage: 25 MG, 1X/DAY(Q AM)
     Route: 048
     Dates: start: 20171229
  4. LISINOPRIL [Concomitant]
     Active Substance: LISINOPRIL
     Dosage: 40 MG
     Route: 048
     Dates: start: 19980101
  5. HYDROCHLOROTHIAZIDE [Concomitant]
     Active Substance: HYDROCHLOROTHIAZIDE
     Dosage: 25 MG, 1X/DAY(Q AM)
     Route: 048
     Dates: start: 19980302
  6. FELODIPINE [Concomitant]
     Active Substance: FELODIPINE
     Dosage: 10 MG, 1X/DAY(Q AM BPS DID NOT DROP DURING USE OF PAXLOVID)
     Route: 048
     Dates: start: 20100101
  7. FENOFIBRATE [Concomitant]
     Active Substance: FENOFIBRATE
     Dosage: 145 MG, 1X/DAY(Q AM)
     Route: 048
     Dates: start: 20180501
  8. ATORVASTATIN [Concomitant]
     Active Substance: ATORVASTATIN
     Dosage: 20 MG, 1X/DAY(QHS)
     Route: 048
     Dates: start: 20150101
  9. REPATHA [Concomitant]
     Active Substance: EVOLOCUMAB
     Dosage: 140 MG, MONTHLY(Q MONTH)
     Route: 058
     Dates: start: 20180601
  10. ESCITALOPRAM [Concomitant]
     Active Substance: ESCITALOPRAM OXALATE
     Dosage: 20 MG, 1X/DAY(Q AM)
     Route: 048
     Dates: start: 20210329
  11. VITAMIN D3 [Concomitant]
     Active Substance: CHOLECALCIFEROL
     Dosage: 2000 MIU
     Route: 048
     Dates: start: 20150101
  12. ASPIRIN [Concomitant]
     Active Substance: ASPIRIN
     Dosage: 81 MG, 1X/DAY(Q AM)
     Route: 048
     Dates: start: 20050101

REACTIONS (8)
  - Rhinorrhoea [Recovering/Resolving]
  - Nasal congestion [Recovering/Resolving]
  - Sneezing [Recovering/Resolving]
  - Cough [Recovering/Resolving]
  - COVID-19 [Unknown]
  - Disease recurrence [Unknown]
  - Product blister packaging issue [Unknown]
  - Incorrect dose administered [Unknown]

NARRATIVE: CASE EVENT DATE: 20220505
